FAERS Safety Report 12664676 (Version 1)
Quarter: 2016Q3

REPORT INFORMATION
  Report Type: Spontaneous
  Country: US (occurrence: US)
  Receive Date: 20160818
  Receipt Date: 20160818
  Transmission Date: 20161109
  Serious: Yes (Other)
  Sender: FDA-Public Use
  Company Number: US-NOVOPROD-505647

PATIENT
  Age: 59 Year
  Sex: Female

DRUGS (1)
  1. NOVOLOG [Suspect]
     Active Substance: INSULIN ASPART
     Indication: TYPE 2 DIABETES MELLITUS
     Dosage: SLIDING SCALE 10-14 UNITS TID
     Route: 058
     Dates: start: 201605

REACTIONS (5)
  - Nephrolithiasis [Unknown]
  - Bone pain [Unknown]
  - Groin pain [Recovered/Resolved]
  - Incorrect product storage [Recovered/Resolved]
  - Blood glucose increased [Recovering/Resolving]

NARRATIVE: CASE EVENT DATE: 2016
